FAERS Safety Report 23910210 (Version 1)
Quarter: 2024Q2

REPORT INFORMATION
  Report Type: Other
  Country: BG (occurrence: BG)
  Receive Date: 20240528
  Receipt Date: 20240528
  Transmission Date: 20240716
  Serious: Yes (Hospitalization, Other)
  Sender: FDA-Public Use
  Company Number: BG-Bion-013163

PATIENT
  Age: 72 Year
  Sex: Male

DRUGS (4)
  1. ENALAPRIL [Suspect]
     Active Substance: ENALAPRIL
     Indication: Hypertension
  2. VINPOCETINE [Concomitant]
     Active Substance: VINPOCETINE
     Indication: Ischaemic stroke
  3. ASPIRIN [Concomitant]
     Active Substance: ASPIRIN
     Indication: Ischaemic stroke
  4. PIRACETAM [Concomitant]
     Active Substance: PIRACETAM
     Indication: Duodenal ulcer

REACTIONS (2)
  - Basal cell carcinoma [Unknown]
  - Dysplastic naevus [Unknown]
